FAERS Safety Report 10352343 (Version 1)
Quarter: 2014Q3

REPORT INFORMATION
  Report Type: Spontaneous
  Country: US (occurrence: US)
  Receive Date: 20140730
  Receipt Date: 20140730
  Transmission Date: 20150326
  Serious: No
  Sender: FDA-Public Use
  Company Number: US-ABBVIE-13P-163-1173714-00

PATIENT
  Sex: Female
  Weight: 118.04 kg

DRUGS (1)
  1. SYNTHROID [Suspect]
     Active Substance: LEVOTHYROXINE SODIUM
     Indication: HYPOTHYROIDISM
     Dosage: UNKNOWN
     Dates: start: 1987

REACTIONS (10)
  - Abdominal discomfort [Unknown]
  - Groin pain [Unknown]
  - Back pain [Unknown]
  - Headache [Unknown]
  - Anxiety [Unknown]
  - Nervousness [Unknown]
  - Dysuria [Not Recovered/Not Resolved]
  - Arthropod bite [Unknown]
  - Infrequent bowel movements [Not Recovered/Not Resolved]
  - Weight increased [Unknown]

NARRATIVE: CASE EVENT DATE: 2010
